FAERS Safety Report 12077140 (Version 1)
Quarter: 2016Q1

REPORT INFORMATION
  Report Type: Spontaneous
  Country: US (occurrence: US)
  Receive Date: 20160215
  Receipt Date: 20160215
  Transmission Date: 20160526
  Serious: Yes (Death, Hospitalization, Other)
  Sender: FDA-Public Use
  Company Number: US-GLAXOSMITHKLINE-US2016020687

PATIENT
  Sex: Female

DRUGS (1)
  1. REQUIP [Suspect]
     Active Substance: ROPINIROLE HYDROCHLORIDE
     Indication: RESTLESS LEGS SYNDROME
     Dosage: UNK

REACTIONS (12)
  - Pericardial effusion [Fatal]
  - Crohn^s disease [Unknown]
  - Weight decreased [Unknown]
  - Cardiac disorder [Unknown]
  - Hospitalisation [Unknown]
  - Cholelithiasis [Unknown]
  - Sleep apnoea syndrome [Unknown]
  - Malaise [Unknown]
  - Myocardial infarction [Fatal]
  - Tracheostomy [Unknown]
  - Decreased appetite [Unknown]
  - Lung disorder [Unknown]
